FAERS Safety Report 5508154-0 (Version None)
Quarter: 2007Q4

REPORT INFORMATION
  Report Type: 
  Country: None (occurrence: None)
  Receive Date: 20071106
  Receipt Date: 20071025
  Transmission Date: 20080405
  Serious: Yes (Life-Threatening, Hospitalization)
  Sender: FDA-Public Use
  Company Number: TW-PFIZER INC-2007085242

PATIENT
  Sex: Male
  Weight: 64 kg

DRUGS (12)
  1. SU-011,248 [Suspect]
     Indication: METASTATIC RENAL CELL CARCINOMA
     Route: 048
     Dates: start: 20060330, end: 20060627
  2. SU-011,248 [Suspect]
     Route: 048
     Dates: start: 20060907, end: 20060910
  3. SU-011,248 [Suspect]
     Route: 048
     Dates: start: 20061019, end: 20070423
  4. SU-011,248 [Suspect]
     Route: 048
     Dates: start: 20070713, end: 20070920
  5. SU-011,248 [Suspect]
     Route: 048
  6. PREDNISOLONE [Concomitant]
     Route: 048
     Dates: start: 20040206, end: 20070927
  7. TERAZOSIN HCL [Concomitant]
     Route: 048
  8. HYDROTALCITE [Concomitant]
     Route: 048
     Dates: start: 20070920, end: 20070927
  9. ENALAPRIL MALEATE [Concomitant]
     Route: 048
     Dates: start: 20070712, end: 20070927
  10. METRONIDAZOLE [Concomitant]
     Route: 048
     Dates: start: 20070921, end: 20070927
  11. VENALOT [Concomitant]
     Route: 048
     Dates: start: 20070921, end: 20070927
  12. MAGNESIUM OXIDE [Concomitant]
     Route: 048
     Dates: start: 20070921, end: 20070927

REACTIONS (2)
  - PNEUMONIA [None]
  - SEPSIS [None]
